FAERS Safety Report 6234128-0 (Version None)
Quarter: 2009Q2

REPORT INFORMATION
  Report Type: 
  Country: None (occurrence: None)
  Receive Date: 20090618
  Receipt Date: 20090615
  Transmission Date: 20091009
  Serious: Yes (Hospitalization)
  Sender: FDA-Public Use
  Company Number: US-RB-016895-09

PATIENT
  Sex: Male

DRUGS (4)
  1. SUBOXONE [Suspect]
     Route: 060
     Dates: start: 20090301, end: 20090605
  2. EFFEXOR [Concomitant]
     Indication: DEPRESSION
     Route: 065
     Dates: start: 20020101
  3. EFFEXOR [Concomitant]
     Indication: ANXIETY
     Route: 065
     Dates: start: 20020101
  4. KLONOPIN [Concomitant]
     Indication: PANIC ATTACK
     Route: 065
     Dates: start: 20020101

REACTIONS (2)
  - HAEMATOMA [None]
  - INFLUENZA LIKE ILLNESS [None]
